FAERS Safety Report 4888287-2 (Version None)
Quarter: 2006Q1

REPORT INFORMATION
  Report Type: 
  Country: None (occurrence: None)
  Receive Date: 20060123
  Receipt Date: 20060105
  Transmission Date: 20060701
  Serious: Yes (Other)
  Sender: FDA-Public Use
  Company Number: PHBS2006CO00631

PATIENT
  Age: 23 Year
  Sex: Female

DRUGS (5)
  1. URBADAN [Concomitant]
  2. TRILEPTAL [Suspect]
     Indication: EPILEPSY
     Dosage: 1800 MG/DAY
     Route: 048
     Dates: start: 20010101
  3. TRILEPTAL [Suspect]
     Dosage: 600 MG/DAY
     Route: 048
  4. KEPPRA [Concomitant]
  5. INTERFERON BETA [Concomitant]
     Dates: start: 20030101

REACTIONS (7)
  - ARTHROPATHY [None]
  - CONDITION AGGRAVATED [None]
  - FACE OEDEMA [None]
  - HYPERSENSITIVITY [None]
  - INFLAMMATION [None]
  - MULTIPLE SCLEROSIS [None]
  - RASH [None]
